FAERS Safety Report 5065782-7 (Version None)
Quarter: 2006Q3

REPORT INFORMATION
  Report Type: 
  Country: None (occurrence: None)
  Receive Date: 20060719
  Receipt Date: 20051010
  Transmission Date: 20061208
  Serious: No
  Sender: FDA-Public Use
  Company Number: 05P-163-0313392-00

PATIENT
  Age: 47 Year
  Sex: Male

DRUGS (6)
  1. NORVIR [Suspect]
     Indication: HIV INFECTION
     Dosage: 100 MG, 2 IN 1 D, ORAL
     Route: 048
     Dates: start: 20050414
  2. SCH 417690 [Suspect]
     Indication: HIV INFECTION
     Dosage: BLINDED ORAL
     Route: 048
     Dates: start: 20050414
  3. DAPSONE [Concomitant]
  4. LEVOFLOXACIN [Concomitant]
  5. LAMIVUDINE + ZIDOVUDINE [Concomitant]
  6. FOSAMPRENAVIR [Concomitant]

REACTIONS (1)
  - PYREXIA [None]
